FAERS Safety Report 7635638-1 (Version None)
Quarter: 2011Q3

REPORT INFORMATION
  Report Type: 
  Country: None (occurrence: None)
  Receive Date: 20110726
  Receipt Date: 20110719
  Transmission Date: 20111222
  Serious: Yes (Death, Life-Threatening, Hospitalization, Disabling, Other)
  Sender: FDA-Public Use
  Company Number: PHHY2010AU55305

PATIENT
  Sex: Male

DRUGS (4)
  1. BISOPROLOL FUMARATE [Concomitant]
     Dosage: 2.5 MG, UNK
     Route: 048
  2. VENLAFAXINE HCL [Concomitant]
     Dosage: 225 MG, QD
     Route: 048
     Dates: end: 20100818
  3. CLOZAPINE [Suspect]
     Dosage: 600 MG, QD
     Route: 048
     Dates: start: 20000531
  4. CLOZAPINE [Suspect]
     Dosage: 300 MG
     Route: 048
     Dates: end: 20100818

REACTIONS (4)
  - MENINGITIS [None]
  - INFECTION [None]
  - MALAISE [None]
  - DEATH [None]
